FAERS Safety Report 7225508-5 (Version None)
Quarter: 2011Q1

REPORT INFORMATION
  Report Type: 
  Country: None (occurrence: None)
  Receive Date: 20110113
  Receipt Date: 20110107
  Transmission Date: 20110831
  Serious: Yes (Death)
  Sender: FDA-Public Use
  Company Number: US-MERCK-1101USA00940

PATIENT
  Age: 65 Year
  Sex: Male

DRUGS (6)
  1. ZOCOR [Suspect]
     Route: 048
  2. TRAZODONE HYDROCHLORIDE [Suspect]
     Route: 065
  3. LORAZEPAM [Suspect]
     Route: 065
  4. LEVOTHYROXINE SODIUM [Suspect]
     Route: 065
  5. OLMESARTAN MEDOXOMIL AND HYDROCHLOROTHIAZIDE [Suspect]
     Route: 065
  6. RANITIDINE [Suspect]
     Route: 065

REACTIONS (4)
  - COMPLETED SUICIDE [None]
  - CARDIAC ARREST [None]
  - RESPIRATORY ARREST [None]
  - OVERDOSE [None]
